FAERS Safety Report 5483304-3 (Version None)
Quarter: 2007Q4

REPORT INFORMATION
  Report Type: 
  Country: None (occurrence: None)
  Receive Date: 20071012
  Receipt Date: 20071003
  Transmission Date: 20080405
  Serious: Yes (Hospitalization)
  Sender: FDA-Public Use
  Company Number: PHBS2007NL16593

PATIENT
  Age: 87 Year
  Sex: Female

DRUGS (5)
  1. METOPROLOL [Suspect]
     Dosage: 150 MG/DAY
  2. TAMOXIFEN CITRATE [Concomitant]
  3. NIFEDIPINE [Concomitant]
  4. FUROSEMIDE [Concomitant]
  5. ACETYLSALICYLIC ACID [Concomitant]

REACTIONS (22)
  - ANXIETY [None]
  - AORTIC VALVE INCOMPETENCE [None]
  - AORTIC VALVE SCLEROSIS [None]
  - ATRIAL TACHYCARDIA [None]
  - ATRIOVENTRICULAR BLOCK COMPLETE [None]
  - ATRIOVENTRICULAR BLOCK SECOND DEGREE [None]
  - ATTENTION-SEEKING BEHAVIOUR [None]
  - BLOOD ALKALINE PHOSPHATASE INCREASED [None]
  - BLOOD CREATININE INCREASED [None]
  - BLOOD UREA INCREASED [None]
  - CARDIAC DISORDER [None]
  - CARDIAC MURMUR [None]
  - CARDIAC PACEMAKER INSERTION [None]
  - CHOLESTASIS [None]
  - DEHYDRATION [None]
  - GAMMA-GLUTAMYLTRANSFERASE INCREASED [None]
  - HEART RATE IRREGULAR [None]
  - MITRAL VALVE STENOSIS [None]
  - ORTHOSTATIC HYPOTENSION [None]
  - SCREAMING [None]
  - SINUS RHYTHM [None]
  - VOMITING [None]
